FAERS Safety Report 7125023-3 (Version None)
Quarter: 2010Q4

REPORT INFORMATION
  Report Type: 
  Country: None (occurrence: None)
  Receive Date: 20101123
  Receipt Date: 20101123
  Transmission Date: 20110411
  Serious: Yes (Hospitalization)
  Sender: FDA-Public Use
  Company Number: None

PATIENT

DRUGS (2)
  1. HEPARIN [Suspect]
     Indication: DEEP VEIN THROMBOSIS
     Dosage: VARIABLE ADJUSTED PER PTT IV DRIP
     Route: 041
     Dates: start: 20100615, end: 20101122
  2. HEPARIN [Suspect]
     Indication: PULMONARY EMBOLISM
     Dosage: VARIABLE ADJUSTED PER PTT IV DRIP
     Route: 041
     Dates: start: 20100615, end: 20101122

REACTIONS (2)
  - DRUG EFFECT DECREASED [None]
  - PRODUCT SUBSTITUTION ISSUE [None]
